FAERS Safety Report 24049306 (Version 2)
Quarter: 2024Q4

REPORT INFORMATION
  Report Type: Report from Study
  Country: US (occurrence: US)
  Receive Date: 20240704
  Receipt Date: 20241008
  Transmission Date: 20250115
  Serious: Yes (Hospitalization)
  Sender: SANOFI AVENTIS
  Company Number: US-SA-SAC20240617000978

PATIENT
  Age: 2 Year
  Sex: Male
  Weight: 13 kg

DRUGS (9)
  1. DUPILUMAB [Suspect]
     Active Substance: DUPILUMAB
     Indication: Dermatitis atopic
     Dosage: UNK
     Route: 058
  2. ZITHROMAX [Concomitant]
     Active Substance: AZITHROMYCIN DIHYDRATE
     Indication: Conjunctivitis
     Dosage: 100 MG, QD
     Route: 048
     Dates: start: 20240329, end: 20240404
  3. ZITHROMAX [Concomitant]
     Active Substance: AZITHROMYCIN DIHYDRATE
     Indication: Sinusitis
     Dosage: 200 MG, QD
     Route: 048
     Dates: start: 20240903, end: 20240908
  4. BROMFED DM [Concomitant]
     Active Substance: BROMPHENIRAMINE MALEATE\DEXTROMETHORPHAN HYDROBROMIDE\PSEUDOEPHEDRINE HYDROCHLORIDE
     Indication: Rhinitis
     Dosage: 0.25 TSP, PRN
     Route: 048
     Dates: start: 20240329, end: 20240404
  5. BROMFED DM [Concomitant]
     Active Substance: BROMPHENIRAMINE MALEATE\DEXTROMETHORPHAN HYDROBROMIDE\PSEUDOEPHEDRINE HYDROCHLORIDE
     Indication: Pharyngitis bacterial
     Dosage: 0.25 TSP, PRN
     Route: 048
     Dates: start: 20240429, end: 20240508
  6. HEP A IN VAC [Concomitant]
     Indication: Immunisation
     Dosage: 0.5 ML, 1X
     Route: 030
     Dates: start: 20240418, end: 20240418
  7. HEP B VAX [Concomitant]
     Indication: Immunisation
     Dosage: 0.5 ML, 1X
     Route: 030
     Dates: start: 20240418, end: 20240418
  8. AUGMENTIN ES-600 [Concomitant]
     Active Substance: AMOXICILLIN\CLAVULANATE POTASSIUM
     Indication: Pharyngitis bacterial
     Dosage: 0.25 TSP, BID
     Route: 048
     Dates: start: 20240429, end: 20240508
  9. POLYTRIM [Concomitant]
     Active Substance: POLYMYXIN B SULFATE\TRIMETHOPRIM SULFATE
     Indication: Conjunctivitis
     Dosage: 1 GTT, TID
     Route: 047
     Dates: start: 20240903, end: 20240913

REACTIONS (1)
  - Brain neoplasm [Recovered/Resolved]

NARRATIVE: CASE EVENT DATE: 20240513
